FAERS Safety Report 15439351 (Version 1)
Quarter: 2018Q3

REPORT INFORMATION
  Report Type: Spontaneous
  Country: BR (occurrence: BR)
  Receive Date: 20180928
  Receipt Date: 20180928
  Transmission Date: 20181010
  Serious: Yes (Other)
  Sender: FDA-Public Use
  Company Number: BR-AMGEN-BRASP2018134351

PATIENT
  Age: 51 Year
  Sex: Female

DRUGS (1)
  1. ENBREL [Suspect]
     Active Substance: ETANERCEPT
     Indication: PRODUCT USED FOR UNKNOWN INDICATION
     Dosage: UNK
     Route: 065
     Dates: start: 20180920

REACTIONS (11)
  - Abdominal distension [Unknown]
  - Secretion discharge [Unknown]
  - Arthritis infective [Unknown]
  - Dysphonia [Unknown]
  - Mobility decreased [Unknown]
  - Visual acuity reduced [Unknown]
  - Pain [Unknown]
  - Pelvic infection [Unknown]
  - Omphalitis [Unknown]
  - Feeling abnormal [Unknown]
  - Burning sensation [Unknown]

NARRATIVE: CASE EVENT DATE: 20180920
